FAERS Safety Report 21222643 (Version 5)
Quarter: 2022Q3

REPORT INFORMATION
  Report Type: Spontaneous
  Country: US (occurrence: US)
  Receive Date: 20220817
  Receipt Date: 20220913
  Transmission Date: 20221027
  Serious: No
  Sender: FDA-Public Use
  Company Number: US-BIOVITRUM-2022US09595

PATIENT
  Age: 2 Year
  Sex: Male

DRUGS (3)
  1. KINERET [Suspect]
     Active Substance: ANAKINRA
     Indication: Juvenile idiopathic arthritis
     Dates: start: 20220810
  2. KINERET [Suspect]
     Active Substance: ANAKINRA
     Indication: Still^s disease
     Dates: start: 20220810
  3. KINERET [Suspect]
     Active Substance: ANAKINRA
     Dates: start: 20220809

REACTIONS (5)
  - Erythema [Not Recovered/Not Resolved]
  - Insomnia [Unknown]
  - Injection site discolouration [Unknown]
  - Injection site reaction [Unknown]
  - Off label use [Unknown]

NARRATIVE: CASE EVENT DATE: 20220809
